FAERS Safety Report 14702914 (Version 3)
Quarter: 2019Q1

REPORT INFORMATION
  Report Type: Spontaneous
  Country: JP (occurrence: JP)
  Receive Date: 20180402
  Receipt Date: 20190314
  Transmission Date: 20190417
  Serious: Yes (Death, Hospitalization, Other)
  Sender: FDA-Public Use
  Company Number: JP-ALXN-A201803049AA

PATIENT

DRUGS (1)
  1. SOLIRIS [Suspect]
     Active Substance: ECULIZUMAB
     Indication: ATYPICAL HAEMOLYTIC URAEMIC SYNDROME
     Dosage: 900 UNK, DAILY
     Route: 042
     Dates: start: 20180312, end: 20180318

REACTIONS (3)
  - Hyperthermia [Fatal]
  - Thrombotic microangiopathy [Fatal]
  - Liver disorder [Fatal]

NARRATIVE: CASE EVENT DATE: 20180313
